FAERS Safety Report 15230054 (Version 1)
Quarter: 2018Q3

REPORT INFORMATION
  Report Type: Spontaneous
  Country: US (occurrence: US)
  Receive Date: 20180802
  Receipt Date: 20180802
  Transmission Date: 20181010
  Serious: Yes (Other)
  Sender: FDA-Public Use
  Company Number: US-ACCORD-062882

PATIENT
  Age: 53 Year
  Sex: Female
  Weight: 80.74 kg

DRUGS (16)
  1. PEGFILGRASTIM [Concomitant]
     Active Substance: PEGFILGRASTIM
  2. PALONOSETRON. [Concomitant]
     Active Substance: PALONOSETRON HYDROCHLORIDE
  3. GRANISETRON [Concomitant]
     Active Substance: GRANISETRON
  4. LIDOCAINE/PRILOCAINE [Concomitant]
  5. CLARITIN [Concomitant]
     Active Substance: LORATADINE
  6. TAMOXIFEN [Concomitant]
     Active Substance: TAMOXIFEN
  7. DOCETAXEL ACCORD [Suspect]
     Active Substance: DOCETAXEL
     Indication: BREAST CANCER
     Dosage: STRENGTH: 80 MG/4 ML (20 MG/ML) INJ 4 ML?DOSAGE: 140 MG TO 150 MG
     Route: 042
     Dates: start: 20140619, end: 20141002
  8. TRIAZOLAM. [Concomitant]
     Active Substance: TRIAZOLAM
  9. PROMETHAZINE [Concomitant]
     Active Substance: PROMETHAZINE\PROMETHAZINE HYDROCHLORIDE
  10. HERCEPTIN [Suspect]
     Active Substance: TRASTUZUMAB
     Indication: BREAST CANCER
  11. DEXAMETHASONE. [Concomitant]
     Active Substance: DEXAMETHASONE
  12. CODEINE/GUAIFENESIN [Concomitant]
  13. NEXIUM [Concomitant]
     Active Substance: ESOMEPRAZOLE MAGNESIUM
  14. PARAPLATIN [Suspect]
     Active Substance: CARBOPLATIN
     Indication: BREAST CANCER
  15. COLACE [Concomitant]
     Active Substance: DOCUSATE SODIUM
  16. ALPRAZOLAM. [Concomitant]
     Active Substance: ALPRAZOLAM

REACTIONS (1)
  - Alopecia [Not Recovered/Not Resolved]

NARRATIVE: CASE EVENT DATE: 20150402
